FAERS Safety Report 13085690 (Version 1)
Quarter: 2017Q1

REPORT INFORMATION
  Report Type: Spontaneous
  Country: US (occurrence: US)
  Receive Date: 20170104
  Receipt Date: 20170104
  Transmission Date: 20170428
  Serious: Yes (Hospitalization)
  Sender: FDA-Public Use
  Company Number: None

PATIENT
  Age: 31 Year
  Sex: Male
  Weight: 97.5 kg

DRUGS (26)
  1. BREO ELLIPTA [Concomitant]
     Active Substance: FLUTICASONE FUROATE\VILANTEROL TRIFENATATE
  2. LACTOBACILLUS ACIDOPHILUS CAPSULE [Concomitant]
  3. ACETAMINOPHEN. [Concomitant]
     Active Substance: ACETAMINOPHEN
  4. COLCHICINE. [Concomitant]
     Active Substance: COLCHICINE
  5. CYCLOBENZAPRINE [Concomitant]
     Active Substance: CYCLOBENZAPRINE
  6. INDOMETHACIN. [Concomitant]
     Active Substance: INDOMETHACIN
  7. SENNA [Concomitant]
     Active Substance: SENNA LEAF\SENNOSIDES\SENNOSIDES A AND B
  8. BENZOCAINE. [Concomitant]
     Active Substance: BENZOCAINE
  9. VANCOMYCIN [Suspect]
     Active Substance: VANCOMYCIN
     Indication: HAEMATOMA INFECTION
     Dosage: ?          OTHER FREQUENCY:EVERY 10 HOURS;?
     Route: 041
     Dates: start: 20160319, end: 20160405
  10. MORPHINE [Concomitant]
     Active Substance: MORPHINE
  11. ZOLPIDEM [Concomitant]
     Active Substance: ZOLPIDEM\ZOLPIDEM TARTRATE
  12. BACLOFEN. [Concomitant]
     Active Substance: BACLOFEN
  13. TRAMADOL. [Concomitant]
     Active Substance: TRAMADOL
  14. ENOXAPARIN [Concomitant]
     Active Substance: ENOXAPARIN
  15. THIAMINE. [Concomitant]
     Active Substance: THIAMINE
  16. LORAZEPAM. [Concomitant]
     Active Substance: LORAZEPAM
  17. OXYCONTIN [Concomitant]
     Active Substance: OXYCODONE HYDROCHLORIDE
  18. OXYCODONE [Concomitant]
     Active Substance: OXYCODONE
  19. HEPARIN [Concomitant]
     Active Substance: HEPARIN SODIUM
  20. GABAPENTIN. [Concomitant]
     Active Substance: GABAPENTIN
  21. BISACODYL. [Concomitant]
     Active Substance: BISACODYL
  22. ONDANSETRON [Concomitant]
     Active Substance: ONDANSETRON
  23. VANCOMYCIN [Suspect]
     Active Substance: VANCOMYCIN
     Indication: ARTHRITIS BACTERIAL
     Dosage: ?          OTHER FREQUENCY:EVERY 10 HOURS;?
     Route: 041
     Dates: start: 20160319, end: 20160405
  24. TRAZODONE [Concomitant]
     Active Substance: TRAZODONE HYDROCHLORIDE
  25. ALBUTEROL HFA [Concomitant]
     Active Substance: ALBUTEROL SULFATE
  26. LACTULOSE. [Concomitant]
     Active Substance: LACTULOSE

REACTIONS (3)
  - Epistaxis [None]
  - Thrombocytopenia [None]
  - Pyrexia [None]

NARRATIVE: CASE EVENT DATE: 20160404
